FAERS Safety Report 23122129 (Version 3)
Quarter: 2023Q4

REPORT INFORMATION
  Report Type: Spontaneous
  Country: JP (occurrence: JP)
  Receive Date: 20231030
  Receipt Date: 20231219
  Transmission Date: 20240109
  Serious: Yes (Hospitalization)
  Sender: FDA-Public Use
  Company Number: JP-GSK-JP2020JPN263031

PATIENT

DRUGS (25)
  1. BENLYSTA [Suspect]
     Active Substance: BELIMUMAB
     Indication: Systemic lupus erythematosus
     Dosage: 9.32 MG/KG
     Route: 041
     Dates: start: 20200210, end: 20200210
  2. BENLYSTA [Suspect]
     Active Substance: BELIMUMAB
     Dosage: 9.30 MG/KG
     Route: 041
     Dates: start: 20200226, end: 20200226
  3. BENLYSTA [Suspect]
     Active Substance: BELIMUMAB
     Dosage: 9.39 MG/KG
     Route: 041
     Dates: start: 20200316, end: 20200316
  4. BENLYSTA [Suspect]
     Active Substance: BELIMUMAB
     Dosage: 9.28 MG/KG
     Route: 041
     Dates: start: 20200415, end: 20200415
  5. BENLYSTA [Suspect]
     Active Substance: BELIMUMAB
     Dosage: 9.28 MG/KG
     Route: 041
     Dates: start: 20200519, end: 20200519
  6. BENLYSTA [Suspect]
     Active Substance: BELIMUMAB
     Dosage: 9.17 MG/KG
     Route: 041
     Dates: start: 20200615, end: 20200615
  7. BENLYSTA [Suspect]
     Active Substance: BELIMUMAB
     Dosage: 9.52 MG/KG
     Route: 041
     Dates: start: 20200721, end: 20200721
  8. BENLYSTA [Suspect]
     Active Substance: BELIMUMAB
     Dosage: 9.52 MG/KG
     Route: 041
     Dates: start: 20200824, end: 20200824
  9. BENLYSTA [Suspect]
     Active Substance: BELIMUMAB
     Dosage: 9.76 MG/KG
     Route: 041
     Dates: start: 20200928, end: 20200928
  10. BENLYSTA [Suspect]
     Active Substance: BELIMUMAB
     Dosage: 9.59 MG/KG
     Route: 041
     Dates: start: 20201102, end: 20201102
  11. BENLYSTA [Suspect]
     Active Substance: BELIMUMAB
     Dosage: 9.64 MG/KG
     Route: 041
     Dates: start: 20201209, end: 20201209
  12. BENLYSTA [Suspect]
     Active Substance: BELIMUMAB
     Dosage: 9.26 MG/KG
     Route: 041
     Dates: start: 20210105, end: 20210105
  13. BENLYSTA [Suspect]
     Active Substance: BELIMUMAB
     Dosage: 9.78 MG/KG
     Route: 041
     Dates: start: 20210208, end: 20210208
  14. BENLYSTA [Suspect]
     Active Substance: BELIMUMAB
     Dosage: UNK, MO,28 TIMES
     Route: 041
     Dates: start: 20210208, end: 20230516
  15. NEORAL [Concomitant]
     Active Substance: CYCLOSPORINE
     Indication: Systemic lupus erythematosus
     Dosage: 50 MG, BID
     Route: 048
  16. CELLCEPT [Concomitant]
     Active Substance: MYCOPHENOLATE MOFETIL
     Indication: Systemic lupus erythematosus
     Dosage: 500 MG, BID
     Route: 048
  17. PREDONINE [Concomitant]
     Active Substance: PREDNISOLONE
     Indication: Systemic lupus erythematosus
     Dosage: 9 MG, 1D
     Route: 048
     Dates: end: 20200316
  18. PREDONINE [Concomitant]
     Active Substance: PREDNISOLONE
     Dosage: 8 MG, 1D
     Route: 048
     Dates: start: 20200317, end: 20200615
  19. PREDONINE [Concomitant]
     Active Substance: PREDNISOLONE
     Dosage: 7 MG, 1D
     Route: 048
     Dates: start: 20200616, end: 20200824
  20. PREDONINE [Concomitant]
     Active Substance: PREDNISOLONE
     Dosage: 6 MG, 1D
     Route: 048
     Dates: start: 20200825
  21. PREDONINE [Concomitant]
     Active Substance: PREDNISOLONE
     Dosage: 5 MG, 1D
     Route: 048
  22. PLAQUENIL [Concomitant]
     Active Substance: HYDROXYCHLOROQUINE SULFATE
     Indication: Systemic lupus erythematosus
     Dosage: 200 MG, 1D
     Route: 048
  23. GASTER [Concomitant]
     Active Substance: FAMOTIDINE
     Indication: Prophylaxis against gastrointestinal ulcer
     Dosage: 1 DF, 1D
     Route: 048
  24. MICARDIS [Concomitant]
     Active Substance: TELMISARTAN
     Indication: Lupus nephritis
     Dosage: 1 DF
     Route: 048
  25. PREDNISOLONE [Concomitant]
     Active Substance: PREDNISOLONE
     Indication: Systemic lupus erythematosus
     Dosage: 1 MG, 1D
     Route: 048

REACTIONS (1)
  - Anorexia nervosa [Recovering/Resolving]

NARRATIVE: CASE EVENT DATE: 20220118
